FAERS Safety Report 14457728 (Version 2)
Quarter: 2018Q2

REPORT INFORMATION
  Report Type: Report from Study
  Country: US (occurrence: US)
  Receive Date: 20180130
  Receipt Date: 20180524
  Transmission Date: 20180711
  Serious: Yes (Hospitalization, Other)
  Sender: FDA-Public Use
  Company Number: US-AEGERION PHARMACEUTICAL, INC-AEGR003564

PATIENT
  Age: 18 Year
  Sex: Male

DRUGS (5)
  1. METRELEPTIN [Suspect]
     Active Substance: METRELEPTIN
     Indication: INSULIN RESISTANCE SYNDROME
     Dosage: 5 MG (1.0 ML), EVERY 12 HOURS
     Route: 058
     Dates: start: 201110
  2. HUMULIN R [Concomitant]
     Active Substance: INSULIN HUMAN
     Dosage: (U500) 150 UNITS, IN THE MORNING DAILY
  3. METFORMIN ER [Concomitant]
     Active Substance: METFORMIN HYDROCHLORIDE
     Indication: PRODUCT USED FOR UNKNOWN INDICATION
     Dosage: 1000 MG, BID
     Route: 048
  4. ENALAPRIL [Concomitant]
     Active Substance: ENALAPRIL
     Indication: NEPHROPATHY
     Dosage: 5 MG, QD
     Route: 048
  5. HUMULIN R [Concomitant]
     Active Substance: INSULIN HUMAN
     Indication: PRODUCT USED FOR UNKNOWN INDICATION
     Dosage: (U-500), 200 IU, BEFORE BREAKFAST
     Route: 058
     Dates: start: 20170831

REACTIONS (1)
  - Papillary thyroid cancer [Recovering/Resolving]

NARRATIVE: CASE EVENT DATE: 20180102
